FAERS Safety Report 11849285 (Version 1)
Quarter: 2015Q4

REPORT INFORMATION
  Report Type: Spontaneous
  Country: US (occurrence: None)
  Receive Date: 20151217
  Receipt Date: 20151217
  Transmission Date: 20160305
  Serious: Yes (Other)
  Sender: FDA-Public Use
  Company Number: None

PATIENT
  Age: 9 Year
  Sex: Male
  Weight: 27.22 kg

DRUGS (5)
  1. MAGNESIUM PILL [Concomitant]
  2. CHILDREN^S FISH OIL PILLS [Concomitant]
  3. FLINTSTONE DAILY WITH IRON [Concomitant]
  4. METHYLPHENIDATE 10MG MALLINCKRODT [Suspect]
     Active Substance: METHYLPHENIDATE
     Indication: ATTENTION DEFICIT/HYPERACTIVITY DISORDER
     Dosage: 1 PILL
     Route: 048
     Dates: start: 20151212, end: 20151214
  5. VITAMIN C [Concomitant]
     Active Substance: ASCORBIC ACID

REACTIONS (2)
  - Dyspnoea [None]
  - Product substitution issue [None]

NARRATIVE: CASE EVENT DATE: 20151214
